FAERS Safety Report 5730354-5 (Version None)
Quarter: 2008Q2

REPORT INFORMATION
  Report Type: 
  Country: None (occurrence: None)
  Receive Date: 20080430
  Receipt Date: 20080125
  Transmission Date: 20081010
  Serious: No
  Sender: FDA-Public Use
  Company Number: 2008-US-000286

PATIENT
  Age: 7 Year
  Sex: Female
  Weight: 16.3 kg

DRUGS (1)
  1. INCRELEX [Suspect]
     Indication: INSULIN-LIKE GROWTH FACTOR DECREASED
     Dosage: 13 UT, BID, SUBCUTANEOUS
     Route: 058
     Dates: start: 20071209

REACTIONS (1)
  - INJECTION SITE URTICARIA [None]
